FAERS Safety Report 23788199 (Version 1)
Quarter: 2024Q2

REPORT INFORMATION
  Report Type: Spontaneous
  Country: IN (occurrence: IN)
  Receive Date: 20240426
  Receipt Date: 20240426
  Transmission Date: 20240716
  Serious: Yes (Hospitalization, Other)
  Sender: FDA-Public Use
  Company Number: IN-TORRENT-00003525

PATIENT
  Age: 35 Year
  Sex: Female

DRUGS (14)
  1. LITHIUM [Suspect]
     Active Substance: LITHIUM
     Indication: Manic symptom
     Dosage: 600 MG/DAY
     Route: 065
  2. OLANZAPINE [Suspect]
     Active Substance: OLANZAPINE
     Indication: Manic symptom
     Dosage: 10 MG/DAY
     Route: 065
  3. RISPERIDONE [Suspect]
     Active Substance: RISPERIDONE
     Indication: Depression
     Dosage: 2 MG/DAY
     Route: 065
  4. SERTRALINE [Suspect]
     Active Substance: SERTRALINE HYDROCHLORIDE
     Indication: Depression
     Dosage: 50 MG/DAY
     Route: 065
  5. ACYCLOVIR [Concomitant]
     Active Substance: ACYCLOVIR
     Indication: Herpes simplex encephalitis
     Dosage: 1 G/DAY
     Route: 065
  6. CHLORPROMAZINE [Concomitant]
     Active Substance: CHLORPROMAZINE
     Indication: Manic symptom
     Dosage: 100 MG/DAY
     Route: 065
  7. ETHAMBUTOL [Concomitant]
     Active Substance: ETHAMBUTOL HYDROCHLORIDE
     Indication: Herpes simplex encephalitis
     Dosage: 800 MG/DAY
     Route: 065
  8. HALOPERIDOL [Concomitant]
     Active Substance: HALOPERIDOL
     Indication: Manic symptom
     Dosage: 10 MG/DAY
     Route: 065
  9. ISONIAZID [Concomitant]
     Active Substance: ISONIAZID
     Indication: Herpes simplex encephalitis
     Dosage: 300 MG/DAY
     Route: 065
  10. PREDNISOLONE [Concomitant]
     Active Substance: PREDNISOLONE
     Indication: Herpes simplex encephalitis
     Dosage: 20 MG
     Route: 065
  11. PYRAZINAMIDE [Concomitant]
     Active Substance: PYRAZINAMIDE
     Indication: Herpes simplex encephalitis
     Dosage: 750 MG/DAY
     Route: 065
  12. RIFAMPIN [Concomitant]
     Active Substance: RIFAMPIN
     Indication: Herpes simplex encephalitis
     Dosage: 450 MG/DAY
     Route: 065
  13. TRIHEXYPHENIDYL [Concomitant]
     Active Substance: TRIHEXYPHENIDYL
     Indication: Manic symptom
     Dosage: 4 MG/DAY
     Route: 065
  14. VALPROATE [Concomitant]
     Active Substance: VALPROIC ACID
     Indication: Manic symptom
     Dosage: 800 MG/DAY
     Route: 065

REACTIONS (15)
  - Irritability [Unknown]
  - Insomnia [Unknown]
  - Psychomotor hyperactivity [Unknown]
  - Logorrhoea [Unknown]
  - Hyperphagia [Unknown]
  - Hypersexuality [Unknown]
  - Grandiosity [Unknown]
  - Movement disorder [Unknown]
  - Torticollis [Unknown]
  - Dyskinesia [Unknown]
  - Chorea [Unknown]
  - Dystonia [Unknown]
  - Postural tremor [Unknown]
  - Mania [Unknown]
  - Condition aggravated [Unknown]
